FAERS Safety Report 10008962 (Version 1)
Quarter: 2014Q1

REPORT INFORMATION
  Report Type: Spontaneous
  Country: US (occurrence: US)
  Receive Date: 20140313
  Receipt Date: 20140313
  Transmission Date: 20141002
  Serious: No
  Sender: FDA-Public Use
  Company Number: US-INCYTE CORPORATION-2012IN001106

PATIENT
  Age: 65 Year
  Sex: Male

DRUGS (3)
  1. JAKAFI [Suspect]
     Indication: MYELOFIBROSIS
     Dosage: 20 MG, BID
     Route: 048
     Dates: start: 2012
  2. LUMIGAN [Concomitant]
     Dosage: 1 DROP INLEFT EYE DAILY
  3. TIMOLOL [Concomitant]
     Dosage: 2 DROPS IN LEFT EYE DAILY

REACTIONS (1)
  - Paraesthesia [Recovered/Resolved]
